FAERS Safety Report 7544864-1 (Version None)
Quarter: 2011Q2

REPORT INFORMATION
  Report Type: 
  Country: None (occurrence: None)
  Receive Date: 20110614
  Receipt Date: 20091122
  Transmission Date: 20111010
  Serious: Yes (Death, Other)
  Sender: FDA-Public Use
  Company Number: US-BAYER-200940687NA

PATIENT
  Age: 71 Year
  Sex: Male
  Weight: 102 kg

DRUGS (9)
  1. LISINOPRIL [Concomitant]
     Dosage: 20 MG, QD
     Route: 048
  2. ALBUTEROL SULFATE AUTOHALER [Concomitant]
     Dosage: ONE PUFF/MIST AS NEEDED,INHALED
  3. TRASYLOL [Suspect]
     Indication: PRODUCT USED FOR UNKNOWN INDICATION
     Route: 042
     Dates: start: 20050420
  4. ACETYLSALICYLIC ACID SRT [Concomitant]
     Dosage: 81 MG, UNK
     Route: 048
  5. DIGOXIN [Concomitant]
     Dosage: 0.125 MG, QD
  6. LIPITOR [Concomitant]
     Dosage: 20 MG. EVERY EVENING
     Route: 048
  7. POTASSIUM CHLORIDE [Concomitant]
     Dosage: 10 MG, QD
  8. LASIX [Concomitant]
     Dosage: 40 MG, BID
     Route: 048
  9. CAPTOPRIL [Concomitant]
     Dosage: 500 MG, QD
     Route: 048
     Dates: start: 20050417

REACTIONS (13)
  - ANXIETY [None]
  - RENAL INJURY [None]
  - INJURY [None]
  - FEAR [None]
  - RENAL FAILURE [None]
  - PAIN [None]
  - ANHEDONIA [None]
  - MULTI-ORGAN FAILURE [None]
  - EMOTIONAL DISTRESS [None]
  - STRESS [None]
  - UNEVALUABLE EVENT [None]
  - DEATH [None]
  - RENAL IMPAIRMENT [None]
